FAERS Safety Report 8009135-8 (Version None)
Quarter: 2011Q4

REPORT INFORMATION
  Report Type: 
  Country: None (occurrence: None)
  Receive Date: 20111227
  Receipt Date: 20111219
  Transmission Date: 20120403
  Serious: Yes (Other)
  Sender: FDA-Public Use
  Company Number: US-PURDUE-USA-2011-0080099

PATIENT
  Sex: Male
  Weight: 191.38 kg

DRUGS (7)
  1. METHAMPHETAMINE HYDROCHLORIDE [Suspect]
     Indication: PRODUCT USED FOR UNKNOWN INDICATION
  2. COCAINE [Suspect]
     Indication: PRODUCT USED FOR UNKNOWN INDICATION
  3. OXYCONTIN [Suspect]
     Indication: PRODUCT USED FOR UNKNOWN INDICATION
     Dosage: UNK
  4. MARIJUANA [Suspect]
     Indication: PRODUCT USED FOR UNKNOWN INDICATION
  5. VICODIN [Suspect]
     Indication: PRODUCT USED FOR UNKNOWN INDICATION
  6. VIAGRA [Suspect]
     Dosage: 2000 MG, Q6H
  7. CODEINE [Suspect]
     Indication: PRODUCT USED FOR UNKNOWN INDICATION

REACTIONS (8)
  - SUBSTANCE ABUSE [None]
  - CARDIOMYOPATHY [None]
  - ERECTION INCREASED [None]
  - PENILE SWELLING [None]
  - PENILE PAIN [None]
  - CONVULSION [None]
  - BLOOD URINE PRESENT [None]
  - MYOCARDIAL INFARCTION [None]
